FAERS Safety Report 6290718-0 (Version None)
Quarter: 2009Q3

REPORT INFORMATION
  Report Type: 
  Country: None (occurrence: None)
  Receive Date: 20090728
  Receipt Date: 20090728
  Transmission Date: 20100115
  Serious: Yes (Other)
  Sender: FDA-Public Use
  Company Number: None

PATIENT
  Age: 66 Year
  Sex: Male
  Weight: 94.3482 kg

DRUGS (1)
  1. PIOGLITAZONE HYDROCHLORIDE 30 MG CIPLA [Suspect]
     Indication: TYPE 2 DIABETES MELLITUS
     Dates: start: 20090710, end: 20090724

REACTIONS (4)
  - CHEST PAIN [None]
  - FATIGUE [None]
  - NAUSEA [None]
  - THINKING ABNORMAL [None]
